FAERS Safety Report 7374083-3 (Version None)
Quarter: 2011Q1

REPORT INFORMATION
  Report Type: 
  Country: None (occurrence: None)
  Receive Date: 20110325
  Receipt Date: 20101111
  Transmission Date: 20110831
  Serious: No
  Sender: FDA-Public Use
  Company Number: US-MYLANLABS-2010S1020930

PATIENT
  Age: 66 Year
  Sex: Female

DRUGS (3)
  1. BENAZEPRIL HYDROCHLORIDE AND HYDROCHLOROTHIAZIDE [Suspect]
     Route: 048
     Dates: start: 20100127, end: 20100401
  2. LEVOXYL [Concomitant]
  3. BENAZEPRIL HYDROCHLORIDE AND HYDROCHLOROTHIAZIDE [Suspect]
     Indication: BLOOD PRESSURE INCREASED
     Route: 048
     Dates: start: 20100127, end: 20100401

REACTIONS (5)
  - SCAR [None]
  - PRURITUS [None]
  - BLISTER [None]
  - PIGMENTATION DISORDER [None]
  - HYPERSENSITIVITY [None]
